FAERS Safety Report 10717946 (Version 2)
Quarter: 2015Q1

REPORT INFORMATION
  Report Type: Report from Study
  Country: US (occurrence: US)
  Receive Date: 20150116
  Receipt Date: 20150123
  Transmission Date: 20150721
  Serious: Yes (Hospitalization)
  Sender: FDA-Public Use
  Company Number: US-ACTELION-A-US2015-111365

PATIENT
  Age: 69 Year
  Sex: Female

DRUGS (2)
  1. LETAIRIS [Concomitant]
     Active Substance: AMBRISENTAN
  2. VENTAVIS [Suspect]
     Active Substance: ILOPROST
     Indication: COR PULMONALE CHRONIC
     Dosage: 6-9 X DAILY
     Route: 055
     Dates: start: 20140703

REACTIONS (4)
  - Atrial fibrillation [Unknown]
  - Pulmonary oedema [Unknown]
  - Pneumonia [Unknown]
  - Weight decreased [Unknown]

NARRATIVE: CASE EVENT DATE: 201412
